FAERS Safety Report 17413146 (Version 2)
Quarter: 2020Q1

REPORT INFORMATION
  Report Type: Spontaneous
  Country: US (occurrence: US)
  Receive Date: 20200213
  Receipt Date: 20200310
  Transmission Date: 20200409
  Serious: Yes (Other)
  Sender: FDA-Public Use
  Company Number: US-ASTRAZENECA-2020SE19827

PATIENT
  Age: 21328 Day
  Sex: Female
  Weight: 81.2 kg

DRUGS (6)
  1. OXYCODONE [Concomitant]
     Active Substance: OXYCODONE
  2. LISINIPRIL [Concomitant]
     Active Substance: LISINOPRIL
  3. NEXIUM [Suspect]
     Active Substance: ESOMEPRAZOLE MAGNESIUM
     Route: 048
  4. FARXIGA [Suspect]
     Active Substance: DAPAGLIFLOZIN PROPANEDIOL
     Dosage: 5.0MG UNKNOWN
     Route: 048
     Dates: start: 20191120, end: 20200203
  5. FARXIGA [Suspect]
     Active Substance: DAPAGLIFLOZIN PROPANEDIOL
     Dosage: UNKNOWN
     Route: 048
  6. METFORMIN [Concomitant]
     Active Substance: METFORMIN HYDROCHLORIDE

REACTIONS (3)
  - Nausea [Unknown]
  - Abdominal pain [Recovered/Resolved]
  - Cold sweat [Unknown]

NARRATIVE: CASE EVENT DATE: 20200201
